FAERS Safety Report 6057455-9 (Version None)
Quarter: 2009Q1

REPORT INFORMATION
  Report Type: 
  Country: None (occurrence: None)
  Receive Date: 20090129
  Receipt Date: 20090121
  Transmission Date: 20090719
  Serious: Yes (Other)
  Sender: FDA-Public Use
  Company Number: US-PFIZER INC-2009158683

PATIENT
  Sex: Male
  Weight: 69.841 kg

DRUGS (5)
  1. LIPITOR [Suspect]
     Indication: BLOOD CHOLESTEROL INCREASED
  2. DIPYRIDAMOLE [Concomitant]
  3. ACETYLSALICYLIC ACID [Concomitant]
  4. BACLOFEN [Concomitant]
  5. ALPRAZOLAM [Concomitant]

REACTIONS (5)
  - ACTIVITIES OF DAILY LIVING IMPAIRED [None]
  - HYPOTONIA [None]
  - MUSCLE TIGHTNESS [None]
  - PAIN [None]
  - WEIGHT DECREASED [None]
